FAERS Safety Report 7636506-1 (Version None)
Quarter: 2011Q3

REPORT INFORMATION
  Report Type: 
  Country: None (occurrence: None)
  Receive Date: 20110726
  Receipt Date: 20110721
  Transmission Date: 20111222
  Serious: Yes (Other)
  Sender: FDA-Public Use
  Company Number: BR-PFIZER INC-2011155402

PATIENT
  Age: 60 Year
  Sex: Female
  Weight: 47 kg

DRUGS (10)
  1. VARENICLINE TARTRATE [Suspect]
     Dosage: 1 MG, 2X/DAY (EVERY 12 HOURS)
     Route: 048
     Dates: start: 20110101
  2. SIMVASTATIN [Concomitant]
     Indication: HYPERCHOLESTEROLAEMIA
     Dosage: UNK
     Dates: start: 20080101
  3. VARENICLINE TARTRATE [Suspect]
     Indication: TOBACCO USER
     Dosage: 0.5 MG, 1X/DAY
     Route: 048
     Dates: start: 20110628, end: 20110101
  4. OMEPRAZOLE [Suspect]
     Indication: GASTRIC DISORDER
     Dosage: 40 MG, 1X/DAY
     Dates: start: 20110628
  5. ATROVENT [Concomitant]
     Indication: EMPHYSEMA
     Dosage: UNK
     Route: 055
  6. SODIUM CHLORIDE 0.9% [Concomitant]
     Dosage: UNK
     Route: 055
  7. DAXAS [Suspect]
     Indication: EMPHYSEMA
     Dosage: 500 MG, 1X/DAY
     Dates: start: 20110628
  8. FLUIMICIL [Concomitant]
     Indication: EMPHYSEMA
     Dosage: 200 MG, UNK
     Dates: start: 20110701
  9. RISEDROSS [Concomitant]
     Indication: OSTEOPOROSIS
     Dosage: 35 MG, ONCE WEEKLY
     Dates: start: 20080101
  10. BEROTEC [Concomitant]
     Indication: EMPHYSEMA
     Dosage: UNK
     Route: 055

REACTIONS (4)
  - SUBCUTANEOUS HAEMATOMA [None]
  - MYALGIA [None]
  - HYPERSENSITIVITY [None]
  - SKIN DISCOLOURATION [None]
